FAERS Safety Report 23122352 (Version 6)
Quarter: 2024Q2

REPORT INFORMATION
  Report Type: Spontaneous
  Country: CA (occurrence: CA)
  Receive Date: 20231030
  Receipt Date: 20240614
  Transmission Date: 20240715
  Serious: Yes (Other)
  Sender: FDA-Public Use
  Company Number: CA-CELLTRION INC.-2023CA020908

PATIENT

DRUGS (13)
  1. INFLECTRA [Suspect]
     Active Substance: INFLIXIMAB-DYYB
     Indication: Colitis ulcerative
     Dosage: 400 MG, AT 0, 2, 6 WEEKS, THEN EVERY 8 WEEKS
     Route: 042
     Dates: start: 20200401, end: 20200520
  2. INFLECTRA [Suspect]
     Active Substance: INFLIXIMAB-DYYB
     Dosage: 10 MG/KG, EVERY 4 WEEKS
     Route: 042
     Dates: start: 20200714, end: 20201006
  3. INFLECTRA [Suspect]
     Active Substance: INFLIXIMAB-DYYB
     Dosage: 900 MG, EVERY 4 WEEKS
     Route: 042
     Dates: start: 20201103
  4. INFLECTRA [Suspect]
     Active Substance: INFLIXIMAB-DYYB
     Dosage: 900 MG, EVERY 4 WEEKS
     Route: 042
     Dates: start: 20230912
  5. INFLECTRA [Suspect]
     Active Substance: INFLIXIMAB-DYYB
     Dosage: 900MG, 5 WEEKS AND 3 DAYS
     Route: 042
     Dates: start: 20231020
  6. INFLECTRA [Suspect]
     Active Substance: INFLIXIMAB-DYYB
     Dosage: 900 MG, EVERY 4 WEEKS
     Route: 042
     Dates: start: 20231117
  7. INFLECTRA [Suspect]
     Active Substance: INFLIXIMAB-DYYB
     Dosage: 900 MG, AFTER 8 WEEKS (PRESCRIBED WAS EVERY 4 WEEKS)
     Route: 042
     Dates: start: 20240112
  8. INFLECTRA [Suspect]
     Active Substance: INFLIXIMAB-DYYB
     Dosage: 900 MG, AFTER 8 WEEKS (PRESCRIBED WAS EVERY 4 WEEKS)
     Route: 042
     Dates: start: 20240112
  9. INFLECTRA [Suspect]
     Active Substance: INFLIXIMAB-DYYB
     Dosage: 900 MG, EVERY 4 WEEKS
     Route: 042
     Dates: start: 20240216
  10. INFLECTRA [Suspect]
     Active Substance: INFLIXIMAB-DYYB
     Dosage: 900 MG, EVERY 4 WEEKS
     Route: 042
     Dates: start: 20240315
  11. INFLECTRA [Suspect]
     Active Substance: INFLIXIMAB-DYYB
     Dosage: 900 MG, EVERY 4 WEEKS
     Route: 042
     Dates: start: 20240411
  12. INFLECTRA [Suspect]
     Active Substance: INFLIXIMAB-DYYB
     Dosage: 900MG AFTER 8 WEEKS AND 1 DAY
     Route: 042
     Dates: start: 20240607
  13. MESALAMINE [Concomitant]
     Active Substance: MESALAMINE
     Dosage: 1 DF, UNKNOWN DOSE
     Route: 065

REACTIONS (5)
  - Tinnitus [Not Recovered/Not Resolved]
  - Weight increased [Recovering/Resolving]
  - Decreased activity [Recovering/Resolving]
  - Condition aggravated [Recovered/Resolved]
  - Inappropriate schedule of product administration [Unknown]

NARRATIVE: CASE EVENT DATE: 20231001
